FAERS Safety Report 24979850 (Version 1)
Quarter: 2025Q1

REPORT INFORMATION
  Report Type: Spontaneous
  Country: GB (occurrence: GB)
  Receive Date: 20250218
  Receipt Date: 20250218
  Transmission Date: 20250409
  Serious: Yes (Other)
  Sender: MSN LABORATORIES PRIVATE LIMITED
  Company Number: None

PATIENT

DRUGS (1)
  1. ATORVASTATIN [Suspect]
     Active Substance: ATORVASTATIN
     Indication: Prophylaxis
     Dosage: 20MG AT NIGHT
     Route: 065
     Dates: start: 20241025, end: 20241211

REACTIONS (1)
  - Brain fog [Recovered/Resolved]

NARRATIVE: CASE EVENT DATE: 20241029
